FAERS Safety Report 16758332 (Version 1)
Quarter: 2019Q3

REPORT INFORMATION
  Report Type: Spontaneous
  Country: RO (occurrence: RO)
  Receive Date: 20190830
  Receipt Date: 20190830
  Transmission Date: 20191005
  Serious: Yes (Hospitalization)
  Sender: FDA-Public Use
  Company Number: RO-ROCHE-2390202

PATIENT
  Age: 40 Year
  Sex: Female

DRUGS (6)
  1. VITAMIN B1 AND B6 [Suspect]
     Active Substance: PYRIDOXINE HYDROCHLORIDE\THIAMINE HYDROCHLORIDE
     Indication: PRODUCT USED FOR UNKNOWN INDICATION
     Dosage: UNK
     Route: 065
  2. OSETRON [Suspect]
     Active Substance: ONDANSETRON HYDROCHLORIDE
     Indication: ANTIEMETIC SUPPORTIVE CARE
     Dosage: UNK
     Route: 065
  3. DEXTRAN 40 [Suspect]
     Active Substance: DEXTRAN 40
     Indication: BLOOD VOLUME EXPANSION
     Dosage: UNK
     Route: 065
  4. PENTOXIFYLLINE. [Suspect]
     Active Substance: PENTOXIFYLLINE
     Indication: PRODUCT USED FOR UNKNOWN INDICATION
     Dosage: UNK
     Route: 065
  5. DIAZEPAM. [Suspect]
     Active Substance: DIAZEPAM
     Indication: VESTIBULAR DISORDER
     Dosage: UNK
     Route: 065
  6. SOLU-MEDROL [Suspect]
     Active Substance: METHYLPREDNISOLONE SODIUM SUCCINATE
     Indication: ADRENOCORTICAL STEROID THERAPY
     Dosage: UNK (HIGH DOSE)
     Route: 065

REACTIONS (6)
  - Keratitis [Unknown]
  - Nausea [Unknown]
  - Ear disorder [Unknown]
  - Nystagmus [Unknown]
  - Therapeutic product effect incomplete [Unknown]
  - Vomiting [Unknown]
